FAERS Safety Report 24818901 (Version 2)
Quarter: 2025Q1

REPORT INFORMATION
  Report Type: Spontaneous
  Country: US (occurrence: US)
  Receive Date: 20250108
  Receipt Date: 20250304
  Transmission Date: 20250409
  Serious: Yes (Hospitalization)
  Sender: ELI LILLY AND COMPANY
  Company Number: US-ELI_LILLY_AND_COMPANY-US202501001896

PATIENT
  Age: 75 Year
  Sex: Female
  Weight: 73.923 kg

DRUGS (2)
  1. ZEPBOUND [Suspect]
     Active Substance: TIRZEPATIDE
     Indication: Weight control
     Dosage: 2.5 MG, WEEKLY (1/W)
     Route: 058
     Dates: start: 20241016, end: 20241217
  2. FAMOTIDINE [Concomitant]
     Active Substance: FAMOTIDINE
     Indication: Product used for unknown indication
     Route: 065

REACTIONS (4)
  - Intestinal perforation [Recovered/Resolved]
  - Diverticular perforation [Recovering/Resolving]
  - Brain fog [Unknown]
  - Asthenia [Unknown]

NARRATIVE: CASE EVENT DATE: 20241217
